FAERS Safety Report 10712509 (Version 3)
Quarter: 2015Q1

REPORT INFORMATION
  Report Type: Report from Study
  Country: CA (occurrence: CA)
  Receive Date: 20150115
  Receipt Date: 20150119
  Transmission Date: 20150721
  Serious: Yes (Hospitalization, Other)
  Sender: FDA-Public Use
  Company Number: CA-ROCHE-1297141

PATIENT
  Age: 50 Year
  Sex: Female
  Weight: 84 kg

DRUGS (6)
  1. COVERSYL [Concomitant]
     Active Substance: PERINDOPRIL
  2. FOLIC ACID. [Concomitant]
     Active Substance: FOLIC ACID
  3. ACTEMRA [Suspect]
     Active Substance: TOCILIZUMAB
     Indication: RHEUMATOID ARTHRITIS
     Route: 042
     Dates: start: 20131009, end: 20131009
  4. ACTEMRA [Suspect]
     Active Substance: TOCILIZUMAB
     Route: 042
     Dates: start: 20140805
  5. METHOTREXATE [Concomitant]
     Active Substance: METHOTREXATE
  6. VITAMIN C [Concomitant]
     Active Substance: ASCORBIC ACID

REACTIONS (12)
  - Bronchitis [Not Recovered/Not Resolved]
  - Influenza [Unknown]
  - Dysphagia [Unknown]
  - Foot fracture [Unknown]
  - Malaise [Unknown]
  - Pneumonia [Unknown]
  - Blood pressure increased [Not Recovered/Not Resolved]
  - Road traffic accident [Unknown]
  - Blood pressure increased [Unknown]
  - Dysphonia [Unknown]
  - Localised infection [Recovered/Resolved]
  - Sinusitis [Not Recovered/Not Resolved]

NARRATIVE: CASE EVENT DATE: 20131014
